FAERS Safety Report 8813657 (Version 2)
Quarter: 2013Q1

REPORT INFORMATION
  Report Type: Spontaneous
  Country: US (occurrence: US)
  Receive Date: 20120927
  Receipt Date: 20130109
  Transmission Date: 20140127
  Serious: Yes (Life-Threatening, Hospitalization, Other)
  Sender: FDA-Public Use
  Company Number: US-009507513-1209USA009222

PATIENT
  Age: 2 Decade
  Sex: Female

DRUGS (1)
  1. NEXPLANON [Suspect]
     Indication: CONTRACEPTION
     Dosage: 68 MG, 3 YEARS
     Route: 059
     Dates: start: 20120425, end: 20120813

REACTIONS (1)
  - Pulmonary embolism [Recovered/Resolved]
